FAERS Safety Report 4802732-X (Version None)
Quarter: 2005Q4

REPORT INFORMATION
  Report Type: 
  Country: None (occurrence: None)
  Receive Date: 20051014
  Receipt Date: 20041220
  Transmission Date: 20060501
  Serious: Yes (Life-Threatening)
  Sender: FDA-Public Use
  Company Number: 04P-163-0284143-00

PATIENT
  Age: 33 Year
  Sex: Female

DRUGS (11)
  1. KALETRA [Suspect]
     Indication: HIV INFECTION
     Dosage: 4 CAPSULE, 2 IN 1 D, PER ORAL
     Route: 048
     Dates: start: 20030708, end: 20041115
  2. SUSTIVA [Suspect]
     Indication: HIV INFECTION
     Dosage: 600 MG, 1 IN 1 D, PER ORAL
     Route: 048
     Dates: start: 20030708, end: 20041115
  3. PRAVASTATIN SODIUM [Concomitant]
  4. BUPROPION HYDROCHLORIDE [Concomitant]
  5. LEXAPRO [Concomitant]
  6. INSULIN [Concomitant]
  7. ESOMEPRAZOLE [Concomitant]
  8. OS-CAL [Concomitant]
  9. CITALOPRAM HYDROBROMIDE [Concomitant]
  10. OXYCOCET [Concomitant]
  11. FLUVASTATIN [Concomitant]

REACTIONS (1)
  - HEPATITIS [None]
